FAERS Safety Report 13689179 (Version 2)
Quarter: 2019Q4

REPORT INFORMATION
  Report Type: Spontaneous
  Country: DE (occurrence: DE)
  Receive Date: 20170626
  Receipt Date: 20191216
  Transmission Date: 20200122
  Serious: Yes (Other)
  Sender: FDA-Public Use
  Company Number: DE-TEVA-778730GER

PATIENT
  Age: 1 Day
  Sex: Female

DRUGS (9)
  1. VENLAFAXINE [Concomitant]
     Active Substance: VENLAFAXINE HYDROCHLORIDE
     Indication: DEPRESSION
     Dosage: 150 MG/D EVERY SECOND DAY, INITIAL 150 MG/D, THEN 75 MG/D
     Route: 064
  2. HUMALOG [Concomitant]
     Active Substance: INSULIN LISPRO
     Indication: GESTATIONAL DIABETES
     Route: 064
  3. VOMEX A [Concomitant]
     Active Substance: DIMENHYDRINATE
     Route: 064
  4. INFLUSPLIT TETRA [Concomitant]
     Active Substance: INFLUENZA VIRUS VACCINE
     Indication: IMMUNISATION
     Route: 064
     Dates: start: 20161116, end: 20161116
  5. VOMEX A [Concomitant]
     Active Substance: DIMENHYDRINATE
     Indication: MORNING SICKNESS
     Dosage: TWICE INTRAVENOUSLY AND DIMENHYDRINATE ORALLY ON DEMAND
     Route: 064
  6. FOLIO [Concomitant]
     Active Substance: FOLIC ACID
     Indication: PROPHYLAXIS OF NEURAL TUBE DEFECT
     Dosage: .4 MILLIGRAM DAILY;
     Route: 064
     Dates: start: 20160421, end: 20160819
  7. PROPESS 10 MG VAGINALINSERT [Concomitant]
     Indication: LABOUR INDUCTION
     Route: 064
     Dates: start: 20170126, end: 20170126
  8. MIRTAZAPIN [Suspect]
     Active Substance: MIRTAZAPINE
     Indication: DEPRESSION
     Dosage: 15 MILLIGRAM DAILY; CHANGE OF MEDICAL ANTIDEPRESSIVE TREATMENT BECAUSE OF ACCOMPANYING NAUSEA.
     Route: 064
  9. ABASAGLAR [Concomitant]
     Active Substance: INSULIN GLARGINE
     Indication: GESTATIONAL DIABETES
     Dosage: 10 IU (INTERNATIONAL UNIT) DAILY; (IN THE EVENING)
     Route: 064

REACTIONS (2)
  - Foetal exposure during pregnancy [Unknown]
  - Small for dates baby [Unknown]

NARRATIVE: CASE EVENT DATE: 20170127
